FAERS Safety Report 6243183-3 (Version None)
Quarter: 2009Q2

REPORT INFORMATION
  Report Type: 
  Country: None (occurrence: None)
  Receive Date: 20090624
  Receipt Date: 20090321
  Transmission Date: 20091009
  Serious: Yes (Hospitalization)
  Sender: FDA-Public Use
  Company Number: TR-ELI_LILLY_AND_COMPANY-TR200906002028

PATIENT
  Age: 58 Year
  Sex: Female

DRUGS (5)
  1. HUMALOG [Suspect]
     Indication: DIABETES MELLITUS
     Dosage: 50 UNK, UNK
     Route: 058
     Dates: start: 20080121
  2. DIOVAN HCT [Concomitant]
     Indication: CARDIAC DISORDER
     Dosage: 80-12.5, DAILY (1/D)
     Route: 065
  3. VASTAREL [Concomitant]
     Indication: HYPERTENSION
     Dosage: UNK, 3/D
     Route: 065
  4. NEBIVOLOL HYDROCHLORIDE [Concomitant]
     Indication: HYPERTENSION
     Dosage: UNK, DAILY (1/D)
     Route: 065
  5. ATORVASTATIN CALCIUM [Concomitant]
     Indication: BLOOD CHOLESTEROL INCREASED
     Dosage: UNK, DAILY (1/D)
     Route: 065
     Dates: start: 19990101

REACTIONS (2)
  - ANGIOPLASTY [None]
  - INJECTION SITE PAIN [None]
